FAERS Safety Report 5289201-0 (Version None)
Quarter: 2007Q1

REPORT INFORMATION
  Report Type: 
  Country: None (occurrence: None)
  Receive Date: 20070124
  Receipt Date: 20060310
  Transmission Date: 20070707
  Serious: Yes (Hospitalization)
  Sender: FDA-Public Use
  Company Number: A001-002-006804

PATIENT
  Age: 87 Year
  Sex: Male

DRUGS (3)
  1. ARICEPT [Suspect]
     Indication: AMNESIA
     Dosage: ORAL - YEARS; ORAL
     Route: 048
     Dates: start: 20051201
  2. ARICEPT [Suspect]
     Indication: AMNESIA
     Dosage: ORAL - YEARS; ORAL
     Route: 048
     Dates: start: 20060101
  3. BUSPAR [Concomitant]

REACTIONS (4)
  - AGGRESSION [None]
  - FALL [None]
  - MENTAL IMPAIRMENT [None]
  - SUBARACHNOID HAEMORRHAGE [None]
